FAERS Safety Report 20634270 (Version 1)
Quarter: 2022Q1

REPORT INFORMATION
  Report Type: Spontaneous
  Country: CN (occurrence: CN)
  Receive Date: 20220325
  Receipt Date: 20220325
  Transmission Date: 20220423
  Serious: Yes (Life-Threatening, Hospitalization)
  Sender: FDA-Public Use
  Company Number: CN-STRIDES ARCOLAB LIMITED-2022SP003061

PATIENT
  Age: 6 Decade
  Sex: Male

DRUGS (2)
  1. ENTECAVIR [Suspect]
     Active Substance: ENTECAVIR
     Indication: Chronic hepatitis B
     Dosage: 0.5 MILLIGRAM/DAILY
     Route: 065
     Dates: start: 201104
  2. ENTECAVIR [Suspect]
     Active Substance: ENTECAVIR
     Indication: Hepatitis B e antigen

REACTIONS (2)
  - Mitochondrial myopathy [Recovered/Resolved]
  - Coma [Unknown]

NARRATIVE: CASE EVENT DATE: 20160501
